FAERS Safety Report 8170781-2 (Version None)
Quarter: 2012Q1

REPORT INFORMATION
  Report Type: 
  Country: None (occurrence: None)
  Receive Date: 20120228
  Receipt Date: 20120221
  Transmission Date: 20120608
  Serious: Yes (Other)
  Sender: FDA-Public Use
  Company Number: US-PFIZER INC-2012047237

PATIENT
  Age: 14 Year
  Sex: Female

DRUGS (1)
  1. ZOLOFT [Suspect]
     Indication: DEPRESSION
     Dosage: 100 MG

REACTIONS (2)
  - ELECTROCARDIOGRAM QT PROLONGED [None]
  - MOOD ALTERED [None]
